FAERS Safety Report 6755387-1 (Version None)
Quarter: 2010Q2

REPORT INFORMATION
  Report Type: 
  Country: None (occurrence: None)
  Receive Date: 20100604
  Receipt Date: 20100525
  Transmission Date: 20101027
  Serious: Yes (Life-Threatening, Hospitalization)
  Sender: FDA-Public Use
  Company Number: CA-PFIZER INC-2010037046

PATIENT
  Age: 64 Year
  Sex: Female
  Weight: 125 kg

DRUGS (8)
  1. EXEMESTANE [Suspect]
     Indication: BREAST CANCER
     Dosage: 25 MG, 1X/DAY
     Route: 048
     Dates: start: 20060131
  2. METOPROLOL [Suspect]
     Dosage: 25 MG, 2X/DAY
  3. TRIAMTERENE AND HYDROCHLOROTHIAZIDE [Suspect]
     Dosage: 25 MG, 1X/DAY
  4. ZOCOR [Suspect]
     Dosage: 20 MG, 1X/DAY
  5. AVANDAMET [Suspect]
     Dosage: UNK
  6. FOSAMAX [Suspect]
     Dosage: 70 MG, 1 ONCE A WEEK
  7. LISINOPRIL [Suspect]
     Dosage: 10 MG, 1X/DAY
  8. CALCIUM WITH VITAMIN D [Concomitant]
     Dosage: TWO TABLETS DAY

REACTIONS (1)
  - PULMONARY EMBOLISM [None]
